FAERS Safety Report 6571459 (Version 2)
Quarter: 2013Q4

REPORT INFORMATION
  Report Type: Spontaneous
  Country: US (occurrence: US)
  Receive Date: 20080306
  Receipt Date: 20131003
  Transmission Date: 20140711
  Serious: Yes (Life-Threatening, Hospitalization, Other)
  Sender: FDA-Public Use
  Company Number: US-ELI_LILLY_AND_COMPANY-US_000134160

PATIENT
  Age: 18 Month
  Sex: Male
  Weight: 11 kg

DRUGS (1)
  1. ZYPREXA [Suspect]
     Dosage: 40 MG, UNKNOWN
     Route: 048

REACTIONS (14)
  - Toxicity to various agents [Unknown]
  - Somnolence [Recovered/Resolved]
  - Respiratory distress [Recovered/Resolved]
  - Tachycardia [Recovered/Resolved]
  - Agitation [Recovered/Resolved]
  - Accidental exposure to product [Recovered/Resolved]
  - Mucous membrane disorder [Recovered/Resolved]
  - Gastrointestinal sounds abnormal [Recovered/Resolved]
  - Blood alkaline phosphatase increased [Recovered/Resolved]
  - Blood glucose increased [Recovered/Resolved]
  - Carbon dioxide decreased [Recovered/Resolved]
  - Mental status changes [Unknown]
  - Anticholinergic syndrome [Unknown]
  - Aggression [Unknown]
